FAERS Safety Report 20913540 (Version 1)
Quarter: 2022Q2

REPORT INFORMATION
  Report Type: Spontaneous
  Country: GB (occurrence: GB)
  Receive Date: 20220604
  Receipt Date: 20220604
  Transmission Date: 20220721
  Serious: Yes (Other)
  Sender: FDA-Public Use
  Company Number: GB-CELLTRION INC.-2022GB008198

PATIENT

DRUGS (1)
  1. INFLIXIMAB [Suspect]
     Active Substance: INFLIXIMAB
     Indication: Behcet^s syndrome
     Dosage: 120 MG, Q2WEEKS
     Route: 058

REACTIONS (2)
  - Behcet^s syndrome [Not Recovered/Not Resolved]
  - Off label use [Not Recovered/Not Resolved]
